FAERS Safety Report 6016996-0 (Version None)
Quarter: 2008Q4

REPORT INFORMATION
  Report Type: 
  Country: None (occurrence: None)
  Receive Date: 20081223
  Receipt Date: 20081210
  Transmission Date: 20090506
  Serious: Yes (Other)
  Sender: FDA-Public Use
  Company Number: US-ROCHE-602129

PATIENT
  Sex: Female
  Weight: 86.2 kg

DRUGS (1)
  1. CAPECITABINE [Suspect]
     Indication: DRUG USE FOR UNKNOWN INDICATION
     Dosage: SIX TABLETS DAILY
     Route: 065
     Dates: start: 20080610, end: 20081201

REACTIONS (1)
  - METASTASES TO BONE [None]
